FAERS Safety Report 24274489 (Version 1)
Quarter: 2024Q3

REPORT INFORMATION
  Report Type: Spontaneous
  Country: TH (occurrence: TH)
  Receive Date: 20240902
  Receipt Date: 20240902
  Transmission Date: 20241017
  Serious: Yes (Death)
  Sender: PFIZER
  Company Number: TH-PFIZER INC-PV202400114506

PATIENT
  Age: 39 Year
  Sex: Male

DRUGS (1)
  1. SUTENT [Suspect]
     Active Substance: SUNITINIB MALATE
     Indication: Gastrointestinal stromal tumour
     Dosage: UNK
     Route: 048
     Dates: start: 20240222

REACTIONS (1)
  - Death [Fatal]

NARRATIVE: CASE EVENT DATE: 20240426
